FAERS Safety Report 24317704 (Version 2)
Quarter: 2024Q4

REPORT INFORMATION
  Report Type: Spontaneous
  Country: DE (occurrence: DE)
  Receive Date: 20240913
  Receipt Date: 20241002
  Transmission Date: 20250115
  Serious: Yes (Other)
  Sender: GLAXOSMITHKLINE
  Company Number: None

PATIENT

DRUGS (2)
  1. BUPROPION [Interacting]
     Active Substance: BUPROPION
     Indication: Product used for unknown indication
     Dosage: UNK
     Route: 065
  2. OPIPRAMOL [Interacting]
     Active Substance: OPIPRAMOL
     Indication: Adjustment disorder
     Dosage: UNK UNK, BID (25-0-25-0)
     Route: 065

REACTIONS (3)
  - Loss of consciousness [Unknown]
  - Drug interaction [Unknown]
  - Road traffic accident [Unknown]
